FAERS Safety Report 25504060 (Version 1)
Quarter: 2025Q3

REPORT INFORMATION
  Report Type: Spontaneous
  Country: US (occurrence: US)
  Receive Date: 20250702
  Receipt Date: 20250702
  Transmission Date: 20251021
  Serious: No
  Sender: MYLAN
  Company Number: US-MYLANLABS-2025M1053972

PATIENT
  Sex: Female

DRUGS (1)
  1. EFFEXOR XR EXTENDED-RELEASE [Suspect]
     Active Substance: VENLAFAXINE HYDROCHLORIDE
     Indication: Depression

REACTIONS (2)
  - Anhedonia [Not Recovered/Not Resolved]
  - Drug ineffective [Unknown]
